FAERS Safety Report 11273721 (Version 1)
Quarter: 2015Q3

REPORT INFORMATION
  Report Type: Spontaneous
  Country: US (occurrence: US)
  Receive Date: 20150715
  Receipt Date: 20150715
  Transmission Date: 20151125
  Serious: No
  Sender: FDA-Public Use
  Company Number: US-ENDO PHARMACEUTICALS INC.-2015-000549

PATIENT
  Age: 65 Year
  Sex: Male
  Weight: 95.34 kg

DRUGS (3)
  1. SIMVASTATIN. [Concomitant]
     Active Substance: SIMVASTATIN
     Indication: PRODUCT USED FOR UNKNOWN INDICATION
     Route: 065
  2. EDEX [Suspect]
     Active Substance: ALPROSTADIL
     Indication: ERECTILE DYSFUNCTION
     Route: 065
     Dates: start: 2014
  3. EDEX [Suspect]
     Active Substance: ALPROSTADIL
     Route: 065

REACTIONS (1)
  - Drug ineffective [Unknown]
